FAERS Safety Report 7655228-4 (Version None)
Quarter: 2011Q3

REPORT INFORMATION
  Report Type: 
  Country: None (occurrence: None)
  Receive Date: 20110804
  Receipt Date: 20110727
  Transmission Date: 20111222
  Serious: Yes (Death, Hospitalization)
  Sender: FDA-Public Use
  Company Number: ES-CELGENEUS-144-21880-11051060

PATIENT
  Sex: Male

DRUGS (5)
  1. REVLIMID [Suspect]
     Dosage: 25 MILLIGRAM
     Route: 048
     Dates: start: 20110501, end: 20110507
  2. REVLIMID [Suspect]
     Indication: MULTIPLE MYELOMA
     Dosage: 25 MILLIGRAM
     Route: 048
     Dates: start: 20110401
  3. DEXAMETHASONE [Suspect]
     Indication: MULTIPLE MYELOMA
     Dosage: 5.3333 MILLIGRAM
     Route: 048
     Dates: start: 20110401
  4. HEPARIN LMW [Concomitant]
     Indication: THROMBOSIS PROPHYLAXIS
     Route: 065
  5. DEXAMETHASONE [Suspect]
     Dosage: 5.3333 MILLIGRAM
     Route: 048
     Dates: start: 20110501, end: 20110507

REACTIONS (4)
  - THROMBOCYTOPENIA [None]
  - NEUTROPENIA [None]
  - ANAEMIA [None]
  - SEPTIC SHOCK [None]
